FAERS Safety Report 4476651-5 (Version None)
Quarter: 2004Q4

REPORT INFORMATION
  Report Type: 
  Country: None (occurrence: None)
  Receive Date: 20041015
  Receipt Date: 20041015
  Transmission Date: 20050328
  Serious: Yes (Life-Threatening, Hospitalization)
  Sender: FDA-Public Use
  Company Number: None

PATIENT
  Age: 47 Year
  Sex: Female
  Weight: 55.7924 kg

DRUGS (30)
  1. SUMATRIPTAN   50MG [Suspect]
     Indication: MIGRAINE
     Dosage: 1 OR 2 TABS   AS NEEDED   ORAL
     Route: 048
     Dates: start: 20020101, end: 20041009
  2. HGH -HOMEOPATHIC ORAL SPRAY- [Concomitant]
  3. SOMATROPHIN [Concomitant]
  4. ETHANOL [Concomitant]
  5. ABGONE -DANDELION ROOT AND LEAF POWDER [Concomitant]
  6. ZINC [Concomitant]
  7. VITAMIN C [Concomitant]
  8. 1-ISOLEUCINE [Concomitant]
  9. 1-VALINE [Concomitant]
  10. CHROMIUM [Concomitant]
  11. PHOSPHATIDYL SERINE [Concomitant]
  12. CALCIUM [Concomitant]
  13. VITAMIN D [Concomitant]
  14. MAGNESIUM [Concomitant]
  15. ZINC [Concomitant]
  16. DIET SMART -EGCG [Concomitant]
  17. THIAMINE [Concomitant]
  18. RIBOFLAVIN TAB [Concomitant]
  19. FOLIC ACID [Concomitant]
  20. VIT B12 [Concomitant]
  21. VITAMIN C [Concomitant]
  22. VITAMIN D [Concomitant]
  23. VITAMIN E [Concomitant]
  24. VITAMIN K [Concomitant]
  25. DANDELION ROOT [Concomitant]
  26. FLAX SEED OIL [Concomitant]
  27. PRUNE/SENNA [Concomitant]
  28. INDERAL [Concomitant]
  29. SYNTHROID [Concomitant]
  30. MINOCYCLINE HCL [Concomitant]

REACTIONS (3)
  - CHEST PAIN [None]
  - ELECTROCARDIOGRAM T WAVE INVERSION [None]
  - VASOSPASM [None]
